FAERS Safety Report 17373081 (Version 1)
Quarter: 2020Q1

REPORT INFORMATION
  Report Type: Report from Study
  Country: CA (occurrence: CA)
  Receive Date: 20200205
  Receipt Date: 20200205
  Transmission Date: 20200409
  Serious: Yes (Hospitalization)
  Sender: FDA-Public Use
  Company Number: CA-JNJFOC-20200112410

PATIENT
  Age: 67 Year
  Sex: Male

DRUGS (1)
  1. STELARA [Suspect]
     Active Substance: USTEKINUMAB
     Indication: CROHN^S DISEASE
     Route: 058
     Dates: start: 20190601

REACTIONS (4)
  - Nausea [Unknown]
  - Functional gastrointestinal disorder [Unknown]
  - Nephrectomy [Unknown]
  - Gout [Unknown]

NARRATIVE: CASE EVENT DATE: 20200121
